FAERS Safety Report 6065366-8 (Version None)
Quarter: 2009Q1

REPORT INFORMATION
  Report Type: 
  Country: None (occurrence: None)
  Receive Date: 20090130
  Receipt Date: 20090119
  Transmission Date: 20090719
  Serious: Yes (Life-Threatening, Hospitalization)
  Sender: FDA-Public Use
  Company Number: 002148

PATIENT
  Age: 12 Year
  Sex: Female

DRUGS (6)
  1. BUSULFEX [Suspect]
     Indication: STEM CELL TRANSPLANT
     Dosage: 18 ML,  INTRAVENOUS
     Route: 042
     Dates: start: 20080204, end: 20080205
  2. THIOTEPA [Suspect]
     Dosage: 210 MG, UNK; INTRAVENOUS, 210 MG, QID; INTRAVENOUS
     Route: 042
     Dates: start: 20080204, end: 20080205
  3. THIOTEPA [Suspect]
     Dosage: 210 MG, UNK; INTRAVENOUS, 210 MG, QID; INTRAVENOUS
     Route: 042
     Dates: start: 20080211, end: 20080212
  4. MELPHALAN (MELPHALAN) [Suspect]
     Dosage: 74 MG,  INTRAVENOUS
     Route: 042
     Dates: start: 20080211, end: 20080212
  5. PHENYTOIN [Concomitant]
  6. LENOGRASTIM (LENOGRASTIM) [Concomitant]

REACTIONS (13)
  - ANOREXIA [None]
  - BONE MARROW TRANSPLANT REJECTION [None]
  - DIARRHOEA [None]
  - DRY MOUTH [None]
  - EPISTAXIS [None]
  - HAEMATURIA [None]
  - MALAISE [None]
  - MUCOUS MEMBRANE DISORDER [None]
  - NAUSEA [None]
  - SEPSIS [None]
  - STAPHYLOCOCCAL SEPSIS [None]
  - STOMATITIS [None]
  - VOMITING [None]
